FAERS Safety Report 17710596 (Version 1)
Quarter: 2020Q2

REPORT INFORMATION
  Report Type: Spontaneous
  Country: US (occurrence: US)
  Receive Date: 20200427
  Receipt Date: 20200427
  Transmission Date: 20200714
  Serious: Yes (Life-Threatening, Hospitalization, Other)
  Sender: FDA-Public Use
  Company Number: US-ALVOGEN-2020-ALVOGEN-108204

PATIENT
  Sex: Female

DRUGS (2)
  1. FENTANYL. [Suspect]
     Active Substance: FENTANYL
     Indication: EPIDURAL ANALGESIA
     Dosage: 2 MICRGRAMS/ML?ACCIDENTAL IV ADMINISTRATION OF FENTANYL WITH BUPIVACAINE INSTEAD OF PENICILLIN G.3
     Route: 042
  2. BUPIVACAINE. [Suspect]
     Active Substance: BUPIVACAINE
     Indication: EPIDURAL ANALGESIA
     Dosage: ACCIDENTAL IV ADMINISTRATION OF FENTANYL WITH BUPIVACAINE INSTEAD OF PENICILLIN G.3
     Route: 042

REACTIONS (7)
  - Product monitoring error [Recovered/Resolved]
  - Respiratory arrest [Recovered/Resolved]
  - Wrong product administered [Recovered/Resolved]
  - Caesarean section [Unknown]
  - Incorrect route of product administration [Recovered/Resolved]
  - Seizure [Recovered/Resolved]
  - Maternal exposure during pregnancy [Unknown]
